FAERS Safety Report 19378823 (Version 1)
Quarter: 2021Q2

REPORT INFORMATION
  Report Type: Report from Study
  Country: CA (occurrence: CA)
  Receive Date: 20210606
  Receipt Date: 20210606
  Transmission Date: 20210717
  Serious: Yes (Hospitalization)
  Sender: FDA-Public Use
  Company Number: CA-JNJFOC-20210557060

PATIENT
  Age: 72 Year
  Sex: Female

DRUGS (21)
  1. BISOPROLOL [Concomitant]
     Active Substance: BISOPROLOL
  2. VENTOLIN [Concomitant]
     Active Substance: ALBUTEROL SULFATE
  3. LASIX [Concomitant]
     Active Substance: FUROSEMIDE
  4. SALBUTAMOL [Concomitant]
     Active Substance: ALBUTEROL
  5. ELIQUIS [Concomitant]
     Active Substance: APIXABAN
  6. SELEXIPAG [Suspect]
     Active Substance: SELEXIPAG
     Route: 048
  7. FERROUS FUMARATE [Concomitant]
     Active Substance: FERROUS FUMARATE
  8. UMECLIDIN [Concomitant]
  9. HYDRALAZINE [Concomitant]
     Active Substance: HYDRALAZINE HYDROCHLORIDE
  10. SELEXIPAG [Suspect]
     Active Substance: SELEXIPAG
     Indication: PULMONARY ARTERIAL HYPERTENSION
     Route: 048
     Dates: start: 20200817
  11. SELEXIPAG [Suspect]
     Active Substance: SELEXIPAG
     Dosage: 800 MCG IN THE MORNING AND 1000 MCG IN THE AFTERNOON
     Route: 048
  12. ADCIRCA [Concomitant]
     Active Substance: TADALAFIL
  13. AZATHIOPRINE. [Concomitant]
     Active Substance: AZATHIOPRINE
  14. CRESTOR [Concomitant]
     Active Substance: ROSUVASTATIN CALCIUM
  15. REACTIN [Concomitant]
  16. ROSUVASTATIN CALCIUM. [Concomitant]
     Active Substance: ROSUVASTATIN CALCIUM
  17. TOBRAMYCIN. [Concomitant]
     Active Substance: TOBRAMYCIN
  18. PANTOLOC [Concomitant]
     Active Substance: PANTOPRAZOLE SODIUM
  19. DEXTRAN [Concomitant]
     Active Substance: DEXTRAN
  20. PERINDOPRIL [Concomitant]
     Active Substance: PERINDOPRIL
  21. ZOPICLONE [Concomitant]
     Active Substance: ZOPICLONE

REACTIONS (1)
  - Abdominal pain [Recovered/Resolved]

NARRATIVE: CASE EVENT DATE: 20210528
